FAERS Safety Report 5777399-7 (Version None)
Quarter: 2008Q2

REPORT INFORMATION
  Report Type: 
  Country: None (occurrence: None)
  Receive Date: 20080618
  Receipt Date: 20080613
  Transmission Date: 20081010
  Serious: Yes (Death, Hospitalization)
  Sender: FDA-Public Use
  Company Number: BR-AVENTIS-200815465GDDC

PATIENT
  Age: 52 Year
  Sex: Female

DRUGS (8)
  1. DOCETAXEL [Suspect]
     Route: 042
     Dates: start: 20080412, end: 20080510
  2. CARBOPLATIN [Suspect]
     Route: 042
     Dates: start: 20080412, end: 20080510
  3. DEXAMETHASONE TAB [Concomitant]
     Dosage: DOSE: UNK
     Dates: start: 20080509, end: 20080511
  4. CAPTOPRIL [Concomitant]
     Indication: HYPERTENSION
     Dosage: DOSE: UNK
  5. METHYLDOPA [Concomitant]
     Indication: HYPERTENSION
     Dosage: DOSE: UNK
     Dates: start: 20040101
  6. OMEPRAZOLE [Concomitant]
     Indication: GASTRITIS
     Dosage: DOSE: UNK
     Dates: start: 20080413
  7. DIPIRONA                           /00039503/ [Concomitant]
     Dosage: DOSE: UNK
     Dates: start: 20080312
  8. MORPHINE [Concomitant]
     Dates: start: 20080312

REACTIONS (6)
  - LEUKOPENIA [None]
  - NEUTROPENIA [None]
  - PNEUMONIA BACTERIAL [None]
  - RENAL FAILURE [None]
  - RESPIRATORY FAILURE [None]
  - THROMBOCYTOPENIA [None]
